FAERS Safety Report 6295456-6 (Version None)
Quarter: 2009Q3

REPORT INFORMATION
  Report Type: 
  Country: None (occurrence: None)
  Receive Date: 20090730
  Receipt Date: 20090713
  Transmission Date: 20100115
  Serious: Yes (Hospitalization)
  Sender: FDA-Public Use
  Company Number: B0585431A

PATIENT
  Age: 13 Year
  Sex: Male

DRUGS (1)
  1. AMOXICILLIN AND CLAVULANATE POTASSIUM [Suspect]
     Dosage: 500 MG / ORAL
     Route: 048

REACTIONS (2)
  - GENE MUTATION IDENTIFICATION TEST POSITIVE [None]
  - KOUNIS SYNDROME [None]
